FAERS Safety Report 8364144-4 (Version None)
Quarter: 2012Q2

REPORT INFORMATION
  Report Type: 
  Country: None (occurrence: None)
  Receive Date: 20120516
  Receipt Date: 20120511
  Transmission Date: 20120825
  Serious: Yes (Other)
  Sender: FDA-Public Use
  Company Number: US-JNJFOC-20120511939

PATIENT
  Age: 67 Year
  Sex: Male
  Weight: 85.73 kg

DRUGS (3)
  1. CHOLESTEROL MEDICATION NOS [Concomitant]
     Indication: BLOOD CHOLESTEROL INCREASED
     Route: 065
  2. LISTERINE MOUTHWASH COOLMINT [Suspect]
     Indication: DENTAL DISORDER PROPHYLAXIS
     Dosage: CAP FULL
     Route: 048
  3. BLOOD PRESSURE MEDICATION NOS [Concomitant]
     Indication: HYPERTENSION
     Route: 065

REACTIONS (2)
  - PRODUCT CONTAINER ISSUE [None]
  - NEPHROLITHIASIS [None]
